FAERS Safety Report 5816874-3 (Version None)
Quarter: 2008Q3

REPORT INFORMATION
  Report Type: 
  Country: None (occurrence: None)
  Receive Date: 20080721
  Receipt Date: 20080711
  Transmission Date: 20090109
  Serious: Yes (Other)
  Sender: FDA-Public Use
  Company Number: JP-MERCK-0807USA02371

PATIENT
  Age: 50 Year
  Sex: Male

DRUGS (2)
  1. PROPECIA [Suspect]
     Route: 048
     Dates: end: 20080601
  2. MINOXIDIL [Concomitant]
     Route: 061

REACTIONS (1)
  - CONVULSION [None]
